FAERS Safety Report 15802088 (Version 1)
Quarter: 2019Q1

REPORT INFORMATION
  Report Type: Spontaneous
  Country: US (occurrence: US)
  Receive Date: 20190104
  Receipt Date: 20190104
  Transmission Date: 20190417
  Serious: No
  Sender: FDA-Public Use
  Company Number: None

PATIENT

DRUGS (2)
  1. AMIODARONE 150MG/ML [Suspect]
     Active Substance: AMIODARONE
  2. METOPROLOL WESTWARD NDC 0143-98975-01 [Suspect]
     Active Substance: METOPROLOL

REACTIONS (2)
  - Product dispensing error [None]
  - Product appearance confusion [None]
